FAERS Safety Report 17230076 (Version 1)
Quarter: 2019Q4

REPORT INFORMATION
  Report Type: Spontaneous
  Country: US (occurrence: US)
  Receive Date: 20191210
  Receipt Date: 20191210
  Transmission Date: 20200122
  Serious: Yes (Hospitalization)
  Sender: FDA-Public Use
  Company Number: None

PATIENT
  Age: 67 Year
  Sex: Male
  Weight: 86.1 kg

DRUGS (1)
  1. AMIODARONE (AMIODARONE HCL (BARR) 200MG TAB) [Suspect]
     Active Substance: AMIODARONE
     Indication: ATRIAL FIBRILLATION
     Route: 048
     Dates: start: 20170603, end: 20180516

REACTIONS (6)
  - Dyspnoea exertional [None]
  - Aortic valve incompetence [None]
  - Productive cough [None]
  - Fatigue [None]
  - Oxygen saturation decreased [None]
  - Respiratory failure [None]

NARRATIVE: CASE EVENT DATE: 20180516
